FAERS Safety Report 5689844-6 (Version None)
Quarter: 2008Q2

REPORT INFORMATION
  Report Type: 
  Country: None (occurrence: None)
  Receive Date: 20080401
  Receipt Date: 20080320
  Transmission Date: 20081010
  Serious: Yes (Life-Threatening)
  Sender: FDA-Public Use
  Company Number: GB-RANBAXY-2008RR-13957

PATIENT

DRUGS (10)
  1. CIPROFLOXACIN [Suspect]
  2. SIMVASTATIN [Suspect]
     Dosage: 40 MG, UNK
  3. ASPIRIN [Concomitant]
     Dosage: 75 MG, UNK
  4. CIMETIDINE [Concomitant]
     Dosage: 400 MG, QD
  5. FUROSEMIDE [Concomitant]
     Dosage: 40 MG, UNK
  6. ISOSORBIDE MONONITRATE [Concomitant]
     Dosage: 20 MG, BID
  7. LEVOTHYROXINE SODIUM [Concomitant]
     Dosage: 100 UG, UNK
  8. NICORANDIL [Concomitant]
     Dosage: 10 MG, BID
  9. PINDOLOL [Concomitant]
     Dosage: 2.5 MG, QD
  10. SIMVASTATIN [Concomitant]
     Dosage: 40 MG, UNK

REACTIONS (3)
  - BLOOD CREATININE INCREASED [None]
  - CHROMATURIA [None]
  - RHABDOMYOLYSIS [None]
